FAERS Safety Report 5301074-6 (Version None)
Quarter: 2007Q2

REPORT INFORMATION
  Report Type: 
  Country: None (occurrence: None)
  Receive Date: 20070418
  Receipt Date: 20070404
  Transmission Date: 20071010
  Serious: Yes (Hospitalization)
  Sender: FDA-Public Use
  Company Number: CA-ELI_LILLY_AND_COMPANY-CA200704002653

PATIENT
  Age: 83 Year
  Sex: Female

DRUGS (8)
  1. FORTEO [Suspect]
     Indication: OSTEOPOROSIS
     Dosage: 20 UG, DAILY (1/D)
     Route: 058
     Dates: start: 20061025
  2. SENNA FRUIT [Concomitant]
  3. SYNTHROID [Concomitant]
  4. CALCIUM [Concomitant]
  5. VITAMIN D [Concomitant]
  6. LIPITOR [Concomitant]
  7. TAMBOCOR [Concomitant]
  8. FAMVIR [Concomitant]

REACTIONS (3)
  - MOVEMENT DISORDER [None]
  - NECK PAIN [None]
  - PAIN IN EXTREMITY [None]
